FAERS Safety Report 24069759 (Version 1)
Quarter: 2024Q3

REPORT INFORMATION
  Report Type: Report from Study
  Country: TR (occurrence: TR)
  Receive Date: 20240710
  Receipt Date: 20240710
  Transmission Date: 20241016
  Serious: No
  Sender: ROCHE
  Company Number: TR-ROCHE-3319035

PATIENT
  Sex: Male
  Weight: 88.0 kg

DRUGS (2)
  1. ALECTINIB [Suspect]
     Active Substance: ALECTINIB
     Indication: Non-small cell lung cancer
     Route: 048
     Dates: start: 20210901
  2. ALECTINIB [Suspect]
     Active Substance: ALECTINIB
     Route: 048
     Dates: start: 20210128

REACTIONS (8)
  - Chest pain [Recovered/Resolved]
  - Constipation [Recovered/Resolved]
  - Bone pain [Recovering/Resolving]
  - Dental caries [Recovered/Resolved]
  - Memory impairment [Recovered/Resolved]
  - Asthenia [Recovering/Resolving]
  - Nausea [Recovered/Resolved]
  - Vomiting [Recovered/Resolved]

NARRATIVE: CASE EVENT DATE: 20210901
